FAERS Safety Report 23146007 (Version 2)
Quarter: 2023Q4

REPORT INFORMATION
  Report Type: Report from Study
  Country: MX (occurrence: MX)
  Receive Date: 20231104
  Receipt Date: 20231113
  Transmission Date: 20240110
  Serious: Yes (Other)
  Sender: FDA-Public Use
  Company Number: MX-002147023-NVSC2023MX233425

PATIENT
  Sex: Male
  Weight: 65 kg

DRUGS (7)
  1. GLYCOPYRRONIUM\INDACATEROL [Suspect]
     Active Substance: GLYCOPYRRONIUM\INDACATEROL
     Indication: Asthma
     Dosage: 1 DOSAGE FORM, BID (110/50 MG) (STARTED 3 OR 4 YEARS AGO) (1 CAPSULE IN THE MORNING AND AT NIGHT)
  2. BUDESONIDE [Suspect]
     Active Substance: BUDESONIDE
     Indication: Asthma
     Dosage: 1 DOSAGE FORM (200 MCG), TID (2 TO 3 CAP DAILY) (STARTED 4 TO 5 YEARS AGO)
  3. BUDESONIDE [Suspect]
     Active Substance: BUDESONIDE
     Dosage: 1 DOSAGE FORM (400 MCG) AS NEEDED (2 TO 3 CAP DAILY)
  4. GLYCOPYRROLATE [Suspect]
     Active Substance: GLYCOPYRROLATE
     Indication: Asthma
     Dosage: 1 DOSAGE FORM (50 MCG) AS NEEDED
  5. GLYCOPYRROLATE [Suspect]
     Active Substance: GLYCOPYRROLATE
     Dosage: 1 DOSAGE FORM (110/50 MCG) (STARTED 4 YEARS AGO) (DAILY WHEN REQUIRED)
  6. INDACATEROL MALEATE [Suspect]
     Active Substance: INDACATEROL MALEATE
     Indication: Ex-tobacco user
     Dosage: 1 DOSAGE FORM, QD (150 MCG) (4 YEARS AGO)
  7. INDACATEROL MALEATE [Suspect]
     Active Substance: INDACATEROL MALEATE
     Indication: Asthma

REACTIONS (4)
  - Asthmatic crisis [Recovered/Resolved]
  - Blood pressure increased [Recovering/Resolving]
  - Off label use [Not Recovered/Not Resolved]
  - Product prescribing error [Not Recovered/Not Resolved]
